FAERS Safety Report 7514814-2 (Version None)
Quarter: 2011Q2

REPORT INFORMATION
  Report Type: 
  Country: None (occurrence: None)
  Receive Date: 20110422
  Receipt Date: 20101022
  Transmission Date: 20111010
  Serious: Yes (Hospitalization)
  Sender: FDA-Public Use
  Company Number: WAES 1010USA02727

PATIENT
  Age: 31 Month
  Sex: Female

DRUGS (3)
  1. SOLVENT TABLETS [Concomitant]
  2. ALBUTEROL SULFATE AUTOHALER [Concomitant]
  3. SINGULAIR [Suspect]
     Indication: HYPERSENSITIVITY
     Dosage: 4 MG/DAILY/PO
     Route: 048
     Dates: start: 20100807

REACTIONS (2)
  - UPPER RESPIRATORY TRACT INFECTION [None]
  - EAR INFECTION [None]
